FAERS Safety Report 8565130-1 (Version None)
Quarter: 2012Q3

REPORT INFORMATION
  Report Type: 
  Country: None (occurrence: None)
  Receive Date: 20120803
  Receipt Date: 20120731
  Transmission Date: 20120928
  Serious: Yes (Other)
  Sender: FDA-Public Use
  Company Number: US-PFIZER INC-2012138453

PATIENT
  Sex: Male

DRUGS (9)
  1. TRAMADOL HYDROCHLORIDE [Concomitant]
     Dosage: 50 MG THREE TIMES DAILY, AS NEEDED
     Route: 048
     Dates: start: 20110228
  2. LISINOPRIL [Concomitant]
     Dosage: 20 MG, 1/2 A DAY FOR A MONTH THEN 1 TABLET DAILY
     Route: 048
  3. SPIRIVA [Concomitant]
     Dosage: 18 UG, 1X/DAY INHALED
     Dates: start: 20120330
  4. ADVAIR DISKUS 100/50 [Concomitant]
     Dosage: 250/50 MCG/DOSE, 1 PUFF EVERY TWELVE HOURS
     Dates: start: 20120330
  5. NEXIUM [Concomitant]
     Dosage: 40 MG DAILY
     Dates: start: 20120427
  6. DUOFILM [Concomitant]
     Dosage: 17 %, 1X/DAY ((ONE) APPLICATION DAILY)
     Dates: start: 20120420
  7. PRAVASTATIN SODIUM [Concomitant]
     Dosage: 20 MG, 1 (ONE) TABLET AT BEDTIME
     Dates: start: 20120330
  8. LIPITOR [Suspect]
     Indication: ARTERIOSCLEROSIS
  9. LIPITOR [Suspect]
     Indication: HYPERCHOLESTEROLAEMIA
     Dosage: 40 MG, 1X/DAY
     Route: 048
     Dates: start: 20120427, end: 20120705

REACTIONS (1)
  - BLOOD CHOLESTEROL INCREASED [None]
